FAERS Safety Report 4953138-4 (Version None)
Quarter: 2006Q1

REPORT INFORMATION
  Report Type: 
  Country: None (occurrence: None)
  Receive Date: 20060127
  Receipt Date: 20050513
  Transmission Date: 20060701
  Serious: Yes (Other)
  Sender: FDA-Public Use
  Company Number: 05-05-0844

PATIENT
  Age: 44 Year
  Sex: Male

DRUGS (1)
  1. CLOZAPINE [Suspect]
     Dosage: 350-500MG QD, ORAL
     Route: 048
     Dates: start: 20001001, end: 20050218

REACTIONS (2)
  - CONSTIPATION [None]
  - PANCREATITIS [None]
